FAERS Safety Report 16355431 (Version 1)
Quarter: 2019Q2

REPORT INFORMATION
  Report Type: Spontaneous
  Country: CA (occurrence: CA)
  Receive Date: 20190525
  Receipt Date: 20190525
  Transmission Date: 20190711
  Serious: Yes (Other)
  Sender: FDA-Public Use
  Company Number: CA-REGENERON PHARMACEUTICALS, INC.-2019-27302

PATIENT

DRUGS (1)
  1. EYLEA [Suspect]
     Active Substance: AFLIBERCEPT
     Indication: DIABETIC RETINAL OEDEMA
     Dosage: TOTAL OF 16 DOSES TO RIGHT EYE,17 DOSES EYLEA TO LEFT EYE,LAST DOSE PRIOR THE EVENT WAS 22-DEC-2017
     Dates: start: 20160426

REACTIONS (2)
  - Myocardial infarction [Unknown]
  - Post procedural myocardial infarction [Unknown]

NARRATIVE: CASE EVENT DATE: 201801
